FAERS Safety Report 15055269 (Version 2)
Quarter: 2018Q3

REPORT INFORMATION
  Report Type: Spontaneous
  Country: US (occurrence: US)
  Receive Date: 20180622
  Receipt Date: 20180924
  Transmission Date: 20181010
  Serious: Yes (Disabling)
  Sender: FDA-Public Use
  Company Number: US-OTSUKA-2018_015764

PATIENT
  Age: 47 Year
  Sex: Female
  Weight: 97.05 kg

DRUGS (2)
  1. ABILIFY [Suspect]
     Active Substance: ARIPIPRAZOLE
     Indication: MAJOR DEPRESSION
     Dosage: 2 MG, QD
     Route: 048
     Dates: start: 2011
  2. ABILIFY [Suspect]
     Active Substance: ARIPIPRAZOLE
     Indication: ADJUVANT THERAPY
     Dosage: 5 MG, QD
     Route: 065
     Dates: end: 2016

REACTIONS (49)
  - Intervertebral disc degeneration [Unknown]
  - Sinus pain [Unknown]
  - Asthenia [Unknown]
  - Compulsive shopping [Recovered/Resolved]
  - Myalgia [Unknown]
  - Disability [Unknown]
  - Irritability [Unknown]
  - Nasal congestion [Unknown]
  - Pain [Unknown]
  - Headache [Unknown]
  - Injury [Unknown]
  - Spinal osteoarthritis [Unknown]
  - Acute sinusitis [Unknown]
  - Sluggishness [Unknown]
  - Abdominal pain [Unknown]
  - Sleep disorder [Unknown]
  - Bankruptcy [Unknown]
  - Vitamin D deficiency [Unknown]
  - Tachyphrenia [Unknown]
  - Stress [Unknown]
  - Compulsive sexual behaviour [Recovered/Resolved]
  - Rhinorrhoea [Unknown]
  - Weight fluctuation [Unknown]
  - Gambling disorder [Recovered/Resolved]
  - Decreased appetite [Unknown]
  - Insomnia [Unknown]
  - Chronic sinusitis [Unknown]
  - Menopausal symptoms [Unknown]
  - Drug screen positive [Unknown]
  - Bipolar disorder [Unknown]
  - Anxiety [Unknown]
  - Restlessness [Unknown]
  - Economic problem [Unknown]
  - Anhedonia [Unknown]
  - Condition aggravated [Unknown]
  - Emotional distress [Unknown]
  - Panic attack [Unknown]
  - Back pain [Unknown]
  - Depression [Unknown]
  - Decreased interest [Unknown]
  - Psychiatric symptom [Unknown]
  - Cough [Unknown]
  - Arthralgia [Unknown]
  - Weight increased [Unknown]
  - Unemployment [Unknown]
  - Sneezing [Unknown]
  - Oedema [Unknown]
  - Malaise [Unknown]
  - Disturbance in attention [Unknown]

NARRATIVE: CASE EVENT DATE: 20120119
